FAERS Safety Report 6806528-9 (Version None)
Quarter: 2010Q2

REPORT INFORMATION
  Report Type: 
  Country: None (occurrence: None)
  Receive Date: 20100629
  Receipt Date: 20080513
  Transmission Date: 20101027
  Serious: Yes (Life-Threatening, Other)
  Sender: FDA-Public Use
  Company Number: US-PFIZER INC-2008026143

PATIENT
  Sex: Male
  Weight: 71.363 kg

DRUGS (8)
  1. TIKOSYN [Suspect]
     Indication: ATRIAL FIBRILLATION
     Dosage: EVERY DAY
     Dates: start: 20050601
  2. LEXAPRO [Interacting]
  3. BARIUM [Interacting]
     Dates: start: 20080318, end: 20080318
  4. ATENOLOL [Concomitant]
  5. ACETYLSALICYLIC ACID [Concomitant]
  6. LASIX [Concomitant]
  7. SPIRONOLACTONE [Concomitant]
  8. GLUCOSAMINE [Concomitant]

REACTIONS (2)
  - DRUG INTERACTION [None]
  - VENTRICULAR TACHYCARDIA [None]
